FAERS Safety Report 7632297-9 (Version None)
Quarter: 2011Q3

REPORT INFORMATION
  Report Type: 
  Country: None (occurrence: None)
  Receive Date: 20110725
  Receipt Date: 20100720
  Transmission Date: 20111222
  Serious: Yes (Other)
  Sender: FDA-Public Use
  Company Number: US-BRISTOL-MYERS SQUIBB COMPANY-15201247

PATIENT
  Age: 86 Year
  Sex: Female

DRUGS (6)
  1. NON-MEDICINAL PRODUCT [Suspect]
  2. DIOVAN [Concomitant]
  3. LIPITOR [Concomitant]
  4. TOPROL-XL [Concomitant]
  5. VITAMIN TAB [Concomitant]
  6. COUMADIN [Suspect]
     Indication: CARDIAC FIBRILLATION
     Dosage: INCRE  TO 7 MG D,10 MG BY INJECTION,STAR:4MG,3MG D ON ALTERNATING DAYS,DECREASED TO 1 MG D
     Dates: start: 20100530

REACTIONS (2)
  - LABORATORY TEST ABNORMAL [None]
  - FATIGUE [None]
